FAERS Safety Report 22055947 (Version 1)
Quarter: 2023Q1

REPORT INFORMATION
  Report Type: Other
  Country: CN (occurrence: None)
  Receive Date: 20230302
  Receipt Date: 20230302
  Transmission Date: 20230418
  Serious: Yes (Hospitalization)
  Sender: FDA-Public Use
  Company Number: CN-Navinta LLC-000402

PATIENT
  Age: 36 Year
  Sex: Female

DRUGS (1)
  1. PENICILLAMINE [Suspect]
     Active Substance: PENICILLAMINE
     Indication: Hepato-lenticular degeneration

REACTIONS (5)
  - Exposure during pregnancy [Unknown]
  - Gingival bleeding [Unknown]
  - Epistaxis [Unknown]
  - Ceruloplasmin abnormal [Unknown]
  - Condition aggravated [Unknown]
